FAERS Safety Report 11898867 (Version 2)
Quarter: 2016Q1

REPORT INFORMATION
  Report Type: Spontaneous
  Country: US (occurrence: US)
  Receive Date: 20160108
  Receipt Date: 20160303
  Transmission Date: 20160526
  Serious: No
  Sender: FDA-Public Use
  Company Number: US-VIFOR (INTERNATIONAL) INC.-VIT-2015-03726

PATIENT
  Age: 53 Year
  Sex: Female
  Weight: 51.9 kg

DRUGS (7)
  1. VENOFER [Concomitant]
     Active Substance: IRON SUCROSE
     Indication: PRODUCT USED FOR UNKNOWN INDICATION
     Dates: start: 20150916, end: 20150925
  2. EPOGEN [Concomitant]
     Active Substance: ERYTHROPOIETIN
     Dates: start: 20150820, end: 20150914
  3. MIRCERA [Suspect]
     Active Substance: METHOXY POLYETHYLENE GLYCOL-EPOETIN BETA
     Indication: NEPHROGENIC ANAEMIA
     Route: 040
     Dates: start: 20151120, end: 20151120
  4. VENOFER [Concomitant]
     Active Substance: IRON SUCROSE
     Dates: start: 20151013, end: 20151104
  5. EPOGEN [Concomitant]
     Active Substance: ERYTHROPOIETIN
     Dates: start: 20150916, end: 20151007
  6. EPOGEN [Concomitant]
     Active Substance: ERYTHROPOIETIN
     Dates: start: 20150810, end: 20150817
  7. MIRCERA [Suspect]
     Active Substance: METHOXY POLYETHYLENE GLYCOL-EPOETIN BETA
     Dates: start: 20151009, end: 20151106

REACTIONS (4)
  - Disorientation [Unknown]
  - Asthenia [Not Recovered/Not Resolved]
  - Muscular weakness [Unknown]
  - Pruritus generalised [Not Recovered/Not Resolved]

NARRATIVE: CASE EVENT DATE: 20151023
